FAERS Safety Report 5187905-1 (Version None)
Quarter: 2006Q4

REPORT INFORMATION
  Report Type: 
  Country: None (occurrence: None)
  Receive Date: 20061221
  Receipt Date: 20050419
  Transmission Date: 20070319
  Serious: Yes (Other)
  Sender: FDA-Public Use
  Company Number: PHBS2005NZ05716

PATIENT
  Age: 37 Year
  Sex: Male

DRUGS (5)
  1. SEROQUEL [Concomitant]
     Dosage: 600 MG/D
     Dates: start: 20050401
  2. CLOZARIL [Suspect]
     Route: 048
     Dates: start: 19970204, end: 20041215
  3. CLOZARIL [Suspect]
     Dosage: 200 MG MANE AND 400 MG NOCTE
     Route: 048
     Dates: start: 20050207, end: 20050401
  4. CLOZARIL [Suspect]
     Dosage: 200 MG/D
     Route: 048
     Dates: start: 20050401
  5. CLOZARIL [Suspect]
     Dosage: 300 MG/D
     Route: 048
     Dates: start: 20060301

REACTIONS (8)
  - AGRANULOCYTOSIS [None]
  - DISEASE RECURRENCE [None]
  - LYMPHOMA [None]
  - LYMPHOPENIA [None]
  - NEUTROPHIL COUNT DECREASED [None]
  - SCHIZOAFFECTIVE DISORDER [None]
  - TREATMENT NONCOMPLIANCE [None]
  - WHITE BLOOD CELL COUNT DECREASED [None]
